FAERS Safety Report 6938638-X (Version None)
Quarter: 2010Q3

REPORT INFORMATION
  Report Type: 
  Country: None (occurrence: None)
  Receive Date: 20100820
  Receipt Date: 20100820
  Transmission Date: 20110219
  Serious: Yes (Congenital Anomaly)
  Sender: FDA-Public Use
  Company Number: JPI-P-011750

PATIENT

DRUGS (1)
  1. LUVOX CR [Suspect]
     Indication: DRUG EXPOSURE DURING PREGNANCY
     Dosage: 250 MG ( 250 MG, 1 IN 1 D) TRANSPLACENTAL, 200MG (200MG, 1 IN 1D) TRANSPLACENTAL, 200MG (200MG, 1 IN
     Route: 064

REACTIONS (2)
  - CONGENITAL MUSCULOSKELETAL ANOMALY [None]
  - MATERNAL DRUGS AFFECTING FOETUS [None]
